FAERS Safety Report 7307961-1 (Version None)
Quarter: 2011Q1

REPORT INFORMATION
  Report Type: 
  Country: None (occurrence: None)
  Receive Date: 20110209
  Receipt Date: 20110124
  Transmission Date: 20110831
  Serious: Yes (Hospitalization, Other)
  Sender: FDA-Public Use
  Company Number: 2011MA000607

PATIENT
  Age: 78 Year
  Sex: Female

DRUGS (11)
  1. CYCLOPHOSPHAMIDE [Concomitant]
  2. TRASTUZUMAB [Concomitant]
  3. LETROZOLE [Concomitant]
  4. METHOTREXATE [Concomitant]
  5. PACLITAXEL [Concomitant]
  6. FLUOROURACIL [Concomitant]
  7. DOXORUBICIN [Concomitant]
  8. PACLITAXEL [Suspect]
     Indication: OVARIAN CANCER
     Dosage: ;IV
     Route: 042
  9. PACLITAXEL [Suspect]
     Indication: BREAST CANCER
     Dosage: ;IV
     Route: 042
  10. TAMOXIFEN CITRATE [Concomitant]
  11. CAPECITABINE [Concomitant]

REACTIONS (5)
  - PYREXIA [None]
  - MYELODYSPLASTIC SYNDROME [None]
  - CONTUSION [None]
  - ACUTE MYELOID LEUKAEMIA [None]
  - FATIGUE [None]
